FAERS Safety Report 17578291 (Version 1)
Quarter: 2020Q1

REPORT INFORMATION
  Report Type: Spontaneous
  Country: DE (occurrence: DE)
  Receive Date: 20200324
  Receipt Date: 20200324
  Transmission Date: 20200409
  Serious: Yes (Congenital Anomaly)
  Sender: FDA-Public Use
  Company Number: DE-GALDERMA-DE19076207

PATIENT
  Sex: Female

DRUGS (2)
  1. ROFECOXIB [Concomitant]
     Active Substance: ROFECOXIB
     Indication: SINUS PAIN
     Route: 064
  2. DOXYCYCLINE. [Suspect]
     Active Substance: DOXYCYCLINE
     Indication: PRODUCT USED FOR UNKNOWN INDICATION
     Route: 064

REACTIONS (3)
  - Foetal exposure during pregnancy [Recovered/Resolved]
  - Atrial septal defect [Unknown]
  - Exposure during pregnancy [Recovered/Resolved]
